FAERS Safety Report 21769554 (Version 1)
Quarter: 2022Q4

REPORT INFORMATION
  Report Type: Report from Study
  Country: US (occurrence: US)
  Receive Date: 20221223
  Receipt Date: 20221223
  Transmission Date: 20230113
  Serious: No
  Sender: FDA-Public Use
  Company Number: US-ABBVIE-4201684

PATIENT
  Sex: Female

DRUGS (21)
  1. RINVOQ [Suspect]
     Active Substance: UPADACITINIB
     Indication: Rheumatoid arthritis
     Route: 048
     Dates: start: 20220730
  2. PREDNISONE [Concomitant]
     Active Substance: PREDNISONE
     Indication: Product used for unknown indication
     Route: 048
  3. NAPROXEN [Concomitant]
     Active Substance: NAPROXEN
     Indication: Product used for unknown indication
     Route: 048
  4. FOLIC ACID TAB 1MG [Concomitant]
     Indication: Product used for unknown indication
     Route: 048
  5. ENBREL [Concomitant]
     Active Substance: ETANERCEPT
     Indication: Product used for unknown indication
     Dosage: 50MG/ML SURECLICK (4=4)
  6. BUDES/FORMOT AER 80-4.5 [Concomitant]
     Indication: Product used for unknown indication
     Dosage: 80-4.5
  7. METHOTREXATE [Concomitant]
     Active Substance: METHOTREXATE
     Indication: Product used for unknown indication
     Route: 048
  8. CETIRIZINE TAB 10MG [Concomitant]
     Indication: Product used for unknown indication
     Route: 048
  9. SULFASALAZIN TAB 500MG [Concomitant]
     Indication: Product used for unknown indication
     Route: 048
  10. AZITHROMYCIN TAB 250MG [Concomitant]
     Indication: Product used for unknown indication
     Route: 048
  11. OXYCOD/APAP TAB 5-325MG [Concomitant]
     Indication: Product used for unknown indication
     Dosage: 5-325MG
     Route: 048
  12. LOPERAMIDE CAP 2MG [Concomitant]
     Indication: Product used for unknown indication
     Route: 048
  13. GABAPENTIN [Concomitant]
     Active Substance: GABAPENTIN
     Indication: Product used for unknown indication
     Route: 048
  14. MECLIZINE TAB 25MG [Concomitant]
     Indication: Product used for unknown indication
     Route: 048
  15. CELECOXIB CAP 200MG [Concomitant]
     Indication: Product used for unknown indication
     Route: 048
  16. ACETAMIN TAB 500MG [Concomitant]
     Indication: Product used for unknown indication
     Route: 048
  17. HUMIRA [Concomitant]
     Active Substance: ADALIMUMAB
     Indication: Product used for unknown indication
     Route: 058
  18. DULERA AER [Concomitant]
     Indication: Product used for unknown indication
     Dosage: 100-5MCG
  19. OMEPRAZOLE [Concomitant]
     Active Substance: OMEPRAZOLE
     Indication: Product used for unknown indication
     Route: 048
  20. ONDANSETRON [Concomitant]
     Active Substance: ONDANSETRON
     Indication: Product used for unknown indication
     Route: 048
  21. HYDROXYCHLOROQUINE [Concomitant]
     Active Substance: HYDROXYCHLOROQUINE
     Indication: Product used for unknown indication
     Route: 048

REACTIONS (2)
  - Rheumatoid arthritis [Unknown]
  - Liver function test increased [Unknown]
